FAERS Safety Report 4462745-7 (Version None)
Quarter: 2004Q3

REPORT INFORMATION
  Report Type: 
  Country: None (occurrence: None)
  Receive Date: 20040930
  Receipt Date: 20040923
  Transmission Date: 20050211
  Serious: Yes (Hospitalization, Disabling)
  Sender: FDA-Public Use
  Company Number: NSADSS2001012222

PATIENT
  Sex: Female
  Weight: 51.71 kg

DRUGS (28)
  1. REMICADE [Suspect]
     Route: 041
     Dates: start: 20000630, end: 20010130
  2. REMICADE [Suspect]
     Route: 041
     Dates: start: 20000630, end: 20010130
  3. REMICADE [Suspect]
     Route: 041
     Dates: start: 20000630, end: 20010130
  4. REMICADE [Suspect]
     Route: 041
     Dates: start: 20000630, end: 20010130
  5. REMICADE [Suspect]
     Route: 041
     Dates: start: 20000630, end: 20010130
  6. REMICADE [Suspect]
     Indication: RHEUMATOID ARTHRITIS
     Route: 041
     Dates: start: 20000630, end: 20010130
  7. METHOTREXATE [Concomitant]
     Indication: DRUG USE FOR UNKNOWN INDICATION
  8. DELTASONE [Concomitant]
     Indication: DRUG USE FOR UNKNOWN INDICATION
  9. AZULFIDINE [Concomitant]
     Indication: DRUG USE FOR UNKNOWN INDICATION
  10. FOLIC ACID [Concomitant]
  11. PREMARIN [Concomitant]
  12. INH [Concomitant]
  13. RIFAMPIN [Concomitant]
  14. PYRIDOXINE [Concomitant]
  15. PYRAZINAMIDE [Concomitant]
  16. PEPCID [Concomitant]
  17. M.V.I. [Concomitant]
  18. M.V.I. [Concomitant]
  19. M.V.I. [Concomitant]
  20. M.V.I. [Concomitant]
  21. M.V.I. [Concomitant]
  22. M.V.I. [Concomitant]
  23. M.V.I. [Concomitant]
  24. M.V.I. [Concomitant]
  25. MYAMBUTOL [Concomitant]
  26. MOTRIN [Concomitant]
  27. CLARITHROMYCIN [Concomitant]
  28. LEVAQUIN [Concomitant]

REACTIONS (31)
  - ALANINE AMINOTRANSFERASE INCREASED [None]
  - ARTHRALGIA [None]
  - ASPARTATE AMINOTRANSFERASE INCREASED [None]
  - BLOOD ALKALINE PHOSPHATASE INCREASED [None]
  - BLOOD BILIRUBIN INCREASED [None]
  - BREAST CYST [None]
  - BRONCHIECTASIS [None]
  - BRONCHITIS [None]
  - CERVICAL GLAND TUBERCULOSIS [None]
  - CHRONIC OBSTRUCTIVE AIRWAYS DISEASE [None]
  - DECREASED APPETITE [None]
  - EMPHYSEMA [None]
  - FEELING ABNORMAL [None]
  - HAEMANGIOMA [None]
  - HAEMATOCRIT DECREASED [None]
  - HAEMOGLOBIN DECREASED [None]
  - INFLUENZA [None]
  - INFLUENZA LIKE ILLNESS [None]
  - INJECTION SITE ERYTHEMA [None]
  - INJECTION SITE INDURATION [None]
  - LEUKOCYTOSIS [None]
  - LIVER FUNCTION TEST ABNORMAL [None]
  - NECROTISING GRANULOMATOUS LYMPHADENITIS [None]
  - PLATELET COUNT INCREASED [None]
  - PNEUMONIA [None]
  - PULMONARY TUBERCULOSIS [None]
  - THERAPY NON-RESPONDER [None]
  - TOE DEFORMITY [None]
  - URINARY TRACT INFECTION [None]
  - VAGINITIS BACTERIAL [None]
  - WEIGHT DECREASED [None]
